FAERS Safety Report 5036500-3 (Version None)
Quarter: 2006Q2

REPORT INFORMATION
  Report Type: 
  Country: None (occurrence: None)
  Receive Date: 20060613
  Receipt Date: 20050902
  Transmission Date: 20061013
  Serious: Yes (Other)
  Sender: FDA-Public Use
  Company Number: US-JNJFOC-20050901645

PATIENT
  Sex: Female

DRUGS (1)
  1. HALDOL DECANOATE (HALOPERIDOL DECANOATE) UNSPECIFIED [Suspect]
     Indication: BIPOLAR DISORDER

REACTIONS (2)
  - INJECTION SITE INFECTION [None]
  - TARDIVE DYSKINESIA [None]
